FAERS Safety Report 19888035 (Version 1)
Quarter: 2021Q3

REPORT INFORMATION
  Report Type: Spontaneous
  Country: US (occurrence: US)
  Receive Date: 20210927
  Receipt Date: 20210927
  Transmission Date: 20211014
  Serious: Yes (Death, Congenital Anomaly)
  Sender: FDA-Public Use
  Company Number: None

PATIENT
  Age: 24 Year
  Sex: Female
  Weight: 112 kg

DRUGS (16)
  1. NOREPINEPHRINE. [Concomitant]
     Active Substance: NOREPINEPHRINE
     Dates: start: 20210924, end: 20210926
  2. LABETALOL [Concomitant]
     Active Substance: LABETALOL\LABETALOL HYDROCHLORIDE
     Dates: start: 20210925, end: 20210925
  3. FENTANYL. [Concomitant]
     Active Substance: FENTANYL
     Dates: start: 20210923
  4. PROSOURCE [Concomitant]
     Active Substance: DIETARY SUPPLEMENT
     Dates: start: 20210924
  5. INSULIN REGULAR (HUMILIN R, NOVOLIN R) [Concomitant]
     Dates: start: 20210923
  6. LANSOPRAZOLE. [Concomitant]
     Active Substance: LANSOPRAZOLE
     Dates: start: 20210924
  7. MIRALAX [Concomitant]
     Active Substance: POLYETHYLENE GLYCOL 3350
     Dates: start: 20210925
  8. ACETAMINOPHEN. [Concomitant]
     Active Substance: ACETAMINOPHEN
     Dates: start: 20210925, end: 20210925
  9. POTASSIUM CHLORIDE. [Concomitant]
     Active Substance: POTASSIUM CHLORIDE
     Dates: start: 20210925, end: 20210925
  10. SODIUM BICARBONATE. [Concomitant]
     Active Substance: SODIUM BICARBONATE
     Dates: start: 20210923, end: 20210923
  11. REMDESIVIR. [Suspect]
     Active Substance: REMDESIVIR
     Indication: COVID-19 PNEUMONIA
     Route: 041
     Dates: start: 20210923
  12. DEXAMETHASONE. [Concomitant]
     Active Substance: DEXAMETHASONE
     Dates: start: 20210923
  13. HEPARIN [Concomitant]
     Active Substance: HEPARIN SODIUM
     Dates: start: 20210923, end: 20210927
  14. POTASSIUM CHLORIDE. [Concomitant]
     Active Substance: POTASSIUM CHLORIDE
     Dates: start: 20210925
  15. SENOKOT [Concomitant]
     Active Substance: SENNOSIDES
     Dates: start: 20210925
  16. PROPOFOL. [Concomitant]
     Active Substance: PROPOFOL
     Dates: start: 20210923

REACTIONS (4)
  - Death neonatal [None]
  - Caesarean section [None]
  - Maternal drugs affecting foetus [None]
  - Foetal heart rate decreased [None]

NARRATIVE: CASE EVENT DATE: 20210926
